FAERS Safety Report 16282857 (Version 2)
Quarter: 2020Q4

REPORT INFORMATION
  Report Type: Spontaneous
  Country: US (occurrence: US)
  Receive Date: 20190507
  Receipt Date: 20201028
  Transmission Date: 20210113
  Serious: Yes (Other)
  Sender: FDA-Public Use
  Company Number: US-ASTRAZENECA-2019SE60869

PATIENT
  Age: 64 Year
  Sex: Male
  Weight: 109.3 kg

DRUGS (42)
  1. CYCLOBENZAPRINE. [Concomitant]
     Active Substance: CYCLOBENZAPRINE
  2. TAMSULOSIN [Concomitant]
     Active Substance: TAMSULOSIN
     Dates: start: 20160114
  3. CEPHALEXIN. [Concomitant]
     Active Substance: CEPHALEXIN
     Dates: start: 20131010
  4. NEXIUM [Suspect]
     Active Substance: ESOMEPRAZOLE MAGNESIUM
     Indication: GASTROOESOPHAGEAL REFLUX DISEASE
     Route: 048
     Dates: start: 20120326, end: 20140904
  5. PRILOSEC [Suspect]
     Active Substance: OMEPRAZOLE MAGNESIUM
     Indication: GASTROOESOPHAGEAL REFLUX DISEASE
     Route: 048
     Dates: start: 20121012, end: 20140115
  6. PRILOSEC [Suspect]
     Active Substance: OMEPRAZOLE MAGNESIUM
     Indication: GASTROOESOPHAGEAL REFLUX DISEASE
     Dosage: GENERIC
     Route: 065
     Dates: start: 20160216
  7. HYDROCHLOROTHIAZIDE. [Concomitant]
     Active Substance: HYDROCHLOROTHIAZIDE
     Indication: HYPERTENSION
     Dates: start: 20110928, end: 20151123
  8. PEPTO-BISMOL [Concomitant]
     Active Substance: BISMUTH SUBSALICYLATE
     Dosage: AS NEEDED
     Dates: start: 2012
  9. CIPROFLOXACIN. [Concomitant]
     Active Substance: CIPROFLOXACIN
  10. TRAMADOL. [Concomitant]
     Active Substance: TRAMADOL
     Dates: start: 20160914
  11. LOVASTATIN. [Concomitant]
     Active Substance: LOVASTATIN
     Dates: start: 20160914
  12. LEVEMIR [Concomitant]
     Active Substance: INSULIN DETEMIR
     Dates: start: 20150702
  13. METFORMIN [Concomitant]
     Active Substance: METFORMIN HYDROCHLORIDE
     Dates: start: 20140122
  14. LANTUS [Concomitant]
     Active Substance: INSULIN GLARGINE
     Dates: start: 20120222
  15. PRILOSEC [Suspect]
     Active Substance: OMEPRAZOLE MAGNESIUM
     Indication: GASTROOESOPHAGEAL REFLUX DISEASE
     Route: 048
     Dates: start: 200501, end: 201602
  16. PRILOSEC [Suspect]
     Active Substance: OMEPRAZOLE MAGNESIUM
     Indication: GASTROOESOPHAGEAL REFLUX DISEASE
     Dosage: DELAYED RELEASE CAPSULE
     Route: 048
     Dates: start: 20121012
  17. CARVEDILOL. [Concomitant]
     Active Substance: CARVEDILOL
     Indication: HYPERTENSION
     Dates: start: 20150314, end: 20170118
  18. PREDNISONE. [Concomitant]
     Active Substance: PREDNISONE
  19. ONDASETRON [Concomitant]
     Active Substance: ONDANSETRON
  20. MELOXICAM. [Concomitant]
     Active Substance: MELOXICAM
     Dates: start: 20140904
  21. NEXIUM [Suspect]
     Active Substance: ESOMEPRAZOLE MAGNESIUM
     Indication: GASTROOESOPHAGEAL REFLUX DISEASE
     Route: 048
     Dates: start: 200501, end: 201602
  22. RANITIDINE. [Concomitant]
     Active Substance: RANITIDINE
     Dates: start: 20120326
  23. OXYCODONE-ACETAMINOPHEN [Concomitant]
     Active Substance: ACETAMINOPHEN\OXYCODONE HYDROCHLORIDE
  24. NITROSTAT [Concomitant]
     Active Substance: NITROGLYCERIN
  25. PHENAZOPYRIDINE. [Concomitant]
     Active Substance: PHENAZOPYRIDINE
  26. TORSEMIDE. [Concomitant]
     Active Substance: TORSEMIDE
     Dates: start: 20170505
  27. PROMETHAZINE [Concomitant]
     Active Substance: PROMETHAZINE HYDROCHLORIDE
     Dates: start: 20150702
  28. CIALIS [Concomitant]
     Active Substance: TADALAFIL
     Dates: start: 20131010
  29. QUINAPRIL. [Concomitant]
     Active Substance: QUINAPRIL
     Dates: start: 20140122
  30. VYTORIN [Concomitant]
     Active Substance: EZETIMIBE\SIMVASTATIN
     Dates: start: 20120222
  31. ASPIRIN. [Concomitant]
     Active Substance: ASPIRIN
     Dates: start: 20120222
  32. NAPROXEN SODIUM. [Concomitant]
     Active Substance: NAPROXEN SODIUM
  33. LATANOPROST. [Concomitant]
     Active Substance: LATANOPROST
     Dates: start: 20150829
  34. NEXIUM [Suspect]
     Active Substance: ESOMEPRAZOLE MAGNESIUM
     Indication: GASTROOESOPHAGEAL REFLUX DISEASE
     Dosage: CAPSULE
     Route: 048
     Dates: start: 20120326
  35. LISINOPRIL. [Concomitant]
     Active Substance: LISINOPRIL
     Indication: HYPERTENSION
     Dates: start: 20131017, end: 20170222
  36. CLONIDINE. [Concomitant]
     Active Substance: CLONIDINE
     Indication: SEDATIVE THERAPY
     Dates: start: 20140122, end: 20170501
  37. METHOCARBAMOL. [Concomitant]
     Active Substance: METHOCARBAMOL
  38. RENVELA [Concomitant]
     Active Substance: SEVELAMER CARBONATE
     Dates: start: 20170224
  39. CLOBETASOL [Concomitant]
     Active Substance: CLOBETASOL
     Dates: start: 20140904
  40. GABAPENTIN. [Concomitant]
     Active Substance: GABAPENTIN
     Dates: start: 20140122
  41. AMLODIPINE [Concomitant]
     Active Substance: AMLODIPINE BESYLATE
     Indication: HYPERTENSION
     Dates: start: 20110614, end: 20170512
  42. ATORVASTATIN [Concomitant]
     Active Substance: ATORVASTATIN
     Indication: BLOOD CHOLESTEROL INCREASED
     Dates: start: 20150519, end: 20170621

REACTIONS (4)
  - Chronic kidney disease [Not Recovered/Not Resolved]
  - End stage renal disease [Not Recovered/Not Resolved]
  - Nephrogenic anaemia [Unknown]
  - Hyperparathyroidism secondary [Unknown]

NARRATIVE: CASE EVENT DATE: 2013
